FAERS Safety Report 8511149-6 (Version None)
Quarter: 2012Q3

REPORT INFORMATION
  Report Type: 
  Country: None (occurrence: None)
  Receive Date: 20120716
  Receipt Date: 20120703
  Transmission Date: 20120928
  Serious: Yes (Hospitalization, Other)
  Sender: FDA-Public Use
  Company Number: US-JNJFOC-20120703213

PATIENT
  Age: 34 Year
  Sex: Male

DRUGS (27)
  1. FLUCONAZOLE [Suspect]
     Route: 042
  2. FAMOTIDINE [Suspect]
     Indication: PRODUCT USED FOR UNKNOWN INDICATION
     Route: 048
  3. AZITHROMYCIN [Suspect]
     Indication: PRODUCT USED FOR UNKNOWN INDICATION
     Route: 048
  4. FLUCONAZOLE [Interacting]
     Route: 048
  5. FLUCONAZOLE [Interacting]
     Route: 048
  6. FLUCONAZOLE [Interacting]
     Route: 048
  7. FAMOTIDINE [Suspect]
     Route: 048
  8. ACETAMINOPHEN/HYDROCODONE BITARTRATE [Suspect]
     Indication: PRODUCT USED FOR UNKNOWN INDICATION
     Dosage: 500/7.5 MG DAILY AS NEEDED
     Route: 048
  9. FLUCONAZOLE [Interacting]
     Route: 048
  10. ETHAMBUTOL HYDROCHLORIDE [Suspect]
     Indication: PRODUCT USED FOR UNKNOWN INDICATION
     Route: 048
  11. RITONAVIR [Suspect]
     Indication: PRODUCT USED FOR UNKNOWN INDICATION
     Route: 048
  12. FILGRASTIM [Suspect]
     Indication: MYCOBACTERIUM AVIUM COMPLEX INFECTION
     Route: 058
  13. CHOLECALCIFEROL [Suspect]
     Indication: PRODUCT USED FOR UNKNOWN INDICATION
     Route: 048
  14. FLUCONAZOLE [Interacting]
     Indication: ACQUIRED IMMUNODEFICIENCY SYNDROME
     Route: 048
  15. FLUCONAZOLE [Interacting]
     Route: 048
  16. VALGANCICLOVIR [Suspect]
     Route: 048
  17. FLUCONAZOLE [Interacting]
     Indication: OROPHARYNGEAL CANDIDIASIS
     Route: 048
  18. FLUCONAZOLE [Suspect]
     Route: 042
  19. EMTRICITABINE AND TENOFOVIR DISOPROXIL FUMARATE [Suspect]
     Indication: PRODUCT USED FOR UNKNOWN INDICATION
     Dosage: 200/300 MG DAILY
     Route: 048
  20. ALPRAZOLAM [Suspect]
     Indication: PRODUCT USED FOR UNKNOWN INDICATION
     Route: 048
  21. FLUCONAZOLE [Interacting]
     Route: 048
  22. FLUCONAZOLE [Interacting]
     Route: 048
  23. ATAZANAVIR [Suspect]
     Indication: PRODUCT USED FOR UNKNOWN INDICATION
     Route: 048
  24. MOXIFLOXACIN [Suspect]
     Indication: PRODUCT USED FOR UNKNOWN INDICATION
     Route: 048
  25. VALGANCICLOVIR [Suspect]
     Indication: CYTOMEGALOVIRUS CHORIORETINITIS
     Route: 048
  26. FLUCONAZOLE [Interacting]
     Route: 048
  27. RIFABUTIN [Interacting]
     Indication: PRODUCT USED FOR UNKNOWN INDICATION
     Route: 048

REACTIONS (6)
  - HIATUS HERNIA [None]
  - OROPHARYNGEAL CANDIDIASIS [None]
  - LEUKOPENIA [None]
  - IRON DEFICIENCY ANAEMIA [None]
  - THROMBOCYTOPENIA [None]
  - DRUG INTERACTION [None]
